FAERS Safety Report 15281675 (Version 2)
Quarter: 2018Q4

REPORT INFORMATION
  Report Type: Spontaneous
  Country: JP (occurrence: JP)
  Receive Date: 20180815
  Receipt Date: 20181005
  Transmission Date: 20190204
  Serious: Yes (Other)
  Sender: FDA-Public Use
  Company Number: JP-BAYER-2018-148177

PATIENT
  Age: 69 Year
  Sex: Male

DRUGS (1)
  1. STIVARGA [Suspect]
     Active Substance: REGORAFENIB
     Indication: COLORECTAL CANCER RECURRENT
     Dosage: DAILY DOSE 160 MG
     Dates: start: 20180730, end: 201808

REACTIONS (3)
  - Blood lactate dehydrogenase increased [Recovering/Resolving]
  - Tumour marker increased [Recovering/Resolving]
  - Metastases to liver [Recovering/Resolving]
